FAERS Safety Report 4333177-7 (Version None)
Quarter: 2004Q1

REPORT INFORMATION
  Report Type: 
  Country: None (occurrence: None)
  Receive Date: 20040330
  Receipt Date: 20021217
  Transmission Date: 20041129
  Serious: Yes (Hospitalization)
  Sender: FDA-Public Use
  Company Number: 2002IC000284

PATIENT
  Age: 63 Year
  Sex: Female
  Weight: 77 kg

DRUGS (12)
  1. FLUOROURACIL [Suspect]
     Indication: COLON CANCER
     Dosage: SEE IMAGE
     Route: 042
     Dates: start: 20000731, end: 20001020
  2. FLUOROURACIL [Suspect]
     Indication: COLON CANCER
     Dosage: SEE IMAGE
     Route: 042
     Dates: start: 20000731, end: 20001229
  3. FLUOROURACIL [Suspect]
     Indication: COLON CANCER
     Dosage: SEE IMAGE
     Route: 042
     Dates: start: 20001030, end: 20001229
  4. LEUCOVORIN CALCIUM [Suspect]
     Indication: COLON CANCER
     Dosage: SEE IMAGE
     Route: 042
     Dates: start: 20000731, end: 20001020
  5. LEUCOVORIN CALCIUM [Suspect]
     Indication: COLON CANCER
     Dosage: SEE IMAGE
     Route: 042
     Dates: start: 20000731, end: 20001229
  6. LEUCOVORIN CALCIUM [Suspect]
     Indication: COLON CANCER
     Dosage: SEE IMAGE
     Route: 042
     Dates: start: 20001030, end: 20001229
  7. IMPODIUM [Concomitant]
  8. DIQUATH [Concomitant]
  9. BUCCAL [Concomitant]
  10. BELOC [Concomitant]
  11. FRAGMIN [Concomitant]
  12. DIGITOXIN TAB [Concomitant]

REACTIONS (9)
  - ABDOMINAL PAIN [None]
  - DIARRHOEA [None]
  - DYSPHAGIA [None]
  - HYPOTENSION [None]
  - INFECTION [None]
  - MARKEDLY REDUCED DIETARY INTAKE [None]
  - MUCOSAL INFLAMMATION [None]
  - ORAL PAIN [None]
  - SCAR [None]
